FAERS Safety Report 23169701 (Version 1)
Quarter: 2023Q4

REPORT INFORMATION
  Report Type: Spontaneous
  Country: DE (occurrence: DE)
  Receive Date: 20231110
  Receipt Date: 20231110
  Transmission Date: 20240110
  Serious: Yes (Hospitalization, Disabling)
  Sender: FDA-Public Use
  Company Number: DE-DCGM-22199757

PATIENT
  Age: 52 Year
  Sex: Male
  Weight: 127.6 kg

DRUGS (6)
  1. BEMPEDOIC ACID [Suspect]
     Active Substance: BEMPEDOIC ACID
     Indication: Hyperlipidaemia
     Dosage: UNK
     Route: 048
     Dates: start: 2019, end: 2022
  2. ROSUVASTATIN CALCIUM [Suspect]
     Active Substance: ROSUVASTATIN CALCIUM
     Indication: Hyperlipidaemia
     Dosage: UNK
     Route: 048
     Dates: start: 2019, end: 2022
  3. ATORVASTATIN [Suspect]
     Active Substance: ATORVASTATIN
     Indication: Hyperlipidaemia
     Dosage: UNK
     Route: 048
     Dates: start: 2019, end: 2022
  4. EZETIMIBE [Suspect]
     Active Substance: EZETIMIBE
     Indication: Hyperlipidaemia
     Dosage: UNK
     Route: 048
     Dates: start: 2019, end: 2022
  5. REPATHA [Suspect]
     Active Substance: EVOLOCUMAB
     Indication: Hypercholesterolaemia
     Dosage: UNK
     Route: 058
     Dates: start: 202208
  6. PRALUENT [Suspect]
     Active Substance: ALIROCUMAB
     Indication: Hypercholesterolaemia
     Dosage: 75 MG
     Route: 058
     Dates: start: 202201

REACTIONS (5)
  - Myalgia [Recovering/Resolving]
  - Diarrhoea [Recovering/Resolving]
  - Depression [Recovering/Resolving]
  - Blood pressure increased [Recovering/Resolving]
  - Palpitations [Recovering/Resolving]
